FAERS Safety Report 13660127 (Version 2)
Quarter: 2018Q2

REPORT INFORMATION
  Report Type: Spontaneous
  Country: US (occurrence: US)
  Receive Date: 20170616
  Receipt Date: 20180508
  Transmission Date: 20180711
  Serious: No
  Sender: FDA-Public Use
  Company Number: US-LEXICON PHARMACEUTICALS, INC-17-1606-00324

PATIENT
  Age: 70 Year
  Sex: Female

DRUGS (18)
  1. TELOTRISTAT ETHYL [Suspect]
     Active Substance: TELOTRISTAT ETHYL
     Route: 048
     Dates: start: 20170511, end: 2018
  2. VITAMIN B12 [Concomitant]
     Active Substance: CYANOCOBALAMIN
  3. SUTENT [Concomitant]
     Active Substance: SUNITINIB MALATE
  4. GINGKO [Concomitant]
     Active Substance: GINKGO
  5. TOPAMAX [Concomitant]
     Active Substance: TOPIRAMATE
  6. SANDOSTATIN [Concomitant]
     Active Substance: OCTREOTIDE ACETATE
  7. SYNTHROID [Concomitant]
     Active Substance: LEVOTHYROXINE SODIUM
  8. METOPROLOL. [Concomitant]
     Active Substance: METOPROLOL
  9. FERROUS SULFATE. [Concomitant]
     Active Substance: FERROUS SULFATE
  10. CBD HEMP OIL [Concomitant]
     Indication: INSOMNIA
  11. TELOTRISTAT ETHYL [Suspect]
     Active Substance: TELOTRISTAT ETHYL
     Indication: CARCINOID TUMOUR
     Route: 048
     Dates: start: 20170511
  12. VITAMIN D [Concomitant]
     Active Substance: CHOLECALCIFEROL
  13. HYDROCHLOROTHIAZIDE. [Concomitant]
     Active Substance: HYDROCHLOROTHIAZIDE
  14. POTASSIUM [Concomitant]
     Active Substance: POTASSIUM
  15. CITALOPRAM [Concomitant]
     Active Substance: CITALOPRAM HYDROBROMIDE
  16. LOW DOSE ASPIRIN [Concomitant]
     Active Substance: ASPIRIN
  17. LOPERAMIDE [Concomitant]
     Active Substance: LOPERAMIDE
  18. SOMATULINE DEPOT [Concomitant]
     Active Substance: LANREOTIDE ACETATE

REACTIONS (2)
  - Nausea [Recovered/Resolved]
  - Flatulence [Not Recovered/Not Resolved]

NARRATIVE: CASE EVENT DATE: 201705
